FAERS Safety Report 12738116 (Version 1)
Quarter: 2016Q3

REPORT INFORMATION
  Report Type: Spontaneous
  Country: US (occurrence: US)
  Receive Date: 20160912
  Receipt Date: 20160912
  Transmission Date: 20161109
  Serious: Yes (Other)
  Sender: FDA-Public Use
  Company Number: US-SA-2016SA157705

PATIENT
  Age: 32 Year
  Sex: Male

DRUGS (3)
  1. TOUJEO [Suspect]
     Active Substance: INSULIN GLARGINE
     Indication: TYPE 2 DIABETES MELLITUS
     Route: 065
  2. TOUJEO [Suspect]
     Active Substance: INSULIN GLARGINE
     Indication: TYPE 2 DIABETES MELLITUS
     Dosage: DOSE:182 UNIT(S)
     Route: 065
  3. SOLOSTAR [Concomitant]
     Active Substance: DEVICE
     Indication: TYPE 2 DIABETES MELLITUS

REACTIONS (16)
  - Blood glucose decreased [Unknown]
  - Depressed level of consciousness [Unknown]
  - Somnolence [Unknown]
  - Hyperhidrosis [Unknown]
  - Confusional state [Unknown]
  - Hunger [Unknown]
  - Dyspnoea [Unknown]
  - Diarrhoea [Unknown]
  - Blood glucose increased [Unknown]
  - Swelling [Unknown]
  - Glycosylated haemoglobin increased [Unknown]
  - Tachycardia [Unknown]
  - Tremor [Unknown]
  - Blood creatinine increased [Unknown]
  - Chest pain [Unknown]
  - Fluid retention [Unknown]
